FAERS Safety Report 20669406 (Version 4)
Quarter: 2022Q3

REPORT INFORMATION
  Report Type: Report from Study
  Country: US (occurrence: US)
  Receive Date: 20220404
  Receipt Date: 20220726
  Transmission Date: 20221027
  Serious: Yes (Hospitalization)
  Sender: FDA-Public Use
  Company Number: US-NOVARTISTESTPH-NVSC2022US074542

PATIENT
  Age: 22 Year
  Sex: Male

DRUGS (1)
  1. ADAKVEO [Suspect]
     Active Substance: CRIZANLIZUMAB-TMCA
     Indication: Sickle cell disease
     Dosage: UNK
     Route: 042
     Dates: start: 20211231, end: 20220503

REACTIONS (2)
  - Pain [Not Recovered/Not Resolved]
  - Disturbance in sexual arousal [Recovering/Resolving]

NARRATIVE: CASE EVENT DATE: 20220211
